FAERS Safety Report 8310263-8 (Version None)
Quarter: 2012Q2

REPORT INFORMATION
  Report Type: 
  Country: None (occurrence: None)
  Receive Date: 20120425
  Receipt Date: 20120416
  Transmission Date: 20120825
  Serious: Yes (Hospitalization)
  Sender: FDA-Public Use
  Company Number: JP-VERTEX PHARMACEUTICALS INC.-AE-2012-001543

PATIENT
  Age: 61 Year
  Sex: Female

DRUGS (7)
  1. TELAVIC (TELAPREVIR) [Suspect]
     Route: 048
     Dates: start: 20120126, end: 20120305
  2. REBETOL [Concomitant]
     Indication: HEPATITIS C
     Route: 048
     Dates: start: 20120111, end: 20120118
  3. PEG-INTRON [Concomitant]
     Indication: HEPATITIS C
     Route: 058
     Dates: start: 20120111, end: 20120111
  4. TELAVIC (TELAPREVIR) [Suspect]
     Indication: HEPATITIS C
     Route: 048
     Dates: start: 20120111, end: 20120118
  5. PEG-INTRON [Concomitant]
     Route: 058
     Dates: start: 20120126
  6. REBETOL [Concomitant]
     Route: 048
     Dates: start: 20120126, end: 20120216
  7. REBETOL [Concomitant]
     Route: 048
     Dates: start: 20120217

REACTIONS (3)
  - PLATELET COUNT DECREASED [None]
  - ERYTHEMA [None]
  - PRURITUS [None]
